FAERS Safety Report 15758390 (Version 2)
Quarter: 2020Q3

REPORT INFORMATION
  Report Type: Report from Study
  Country: US (occurrence: US)
  Receive Date: 20181225
  Receipt Date: 20190306
  Transmission Date: 20201105
  Serious: Yes (Hospitalization)
  Sender: FDA-Public Use
  Company Number: US-ASTRAZENECA-2018SF52160

PATIENT
  Age: 64 Year
  Sex: Male
  Weight: 98.9 kg

DRUGS (11)
  1. CLARITIN [Concomitant]
     Active Substance: LORATADINE
     Dosage: 75 MCG, UNK
     Route: 065
     Dates: start: 2016
  2. DURVALUMAB. [Suspect]
     Active Substance: DURVALUMAB
     Indication: PROSTATE CANCER METASTATIC
     Route: 042
     Dates: start: 20180814, end: 20181009
  3. SYNTHROID [Concomitant]
     Active Substance: LEVOTHYROXINE SODIUM
     Route: 065
     Dates: start: 2014
  4. IMARADENANT. [Suspect]
     Active Substance: IMARADENANT
     Indication: PROSTATE CANCER METASTATIC
     Route: 048
     Dates: start: 20180814, end: 20181106
  5. IMARADENANT. [Suspect]
     Active Substance: IMARADENANT
     Indication: PROSTATE CANCER METASTATIC
     Route: 048
  6. COMPAZINE [Concomitant]
     Active Substance: PROCHLORPERAZINE MALEATE
     Dosage: AS REQUIRED
     Route: 065
     Dates: start: 201808
  7. ASPRIN [Concomitant]
     Active Substance: ASPIRIN
     Route: 065
     Dates: start: 2008
  8. VITAMIN D3 [Concomitant]
     Active Substance: CHOLECALCIFEROL
     Dosage: 2000 DAILY
     Route: 065
     Dates: start: 2016
  9. HISTRELIN ACETATE [Concomitant]
     Active Substance: HISTRELIN ACETATE
     Route: 058
     Dates: start: 201702, end: 201804
  10. NIACIN. [Concomitant]
     Active Substance: NIACIN
     Route: 065
     Dates: start: 201808
  11. TRAVATAN Z [Concomitant]
     Active Substance: TRAVOPROST
     Dosage: 0.004
     Route: 065
     Dates: start: 2005

REACTIONS (1)
  - Type 1 diabetes mellitus [Recovered/Resolved with Sequelae]

NARRATIVE: CASE EVENT DATE: 20181107
